FAERS Safety Report 4579646-6 (Version None)
Quarter: 2005Q1

REPORT INFORMATION
  Report Type: 
  Country: None (occurrence: None)
  Receive Date: 20050210
  Receipt Date: 20050210
  Transmission Date: 20050727
  Serious: Yes (Hospitalization)
  Sender: FDA-Public Use
  Company Number: None

PATIENT
  Age: 64 Year
  Sex: Male
  Weight: 77.5651 kg

DRUGS (4)
  1. OXALIPLATIN [Suspect]
     Indication: BILE DUCT CANCER
     Dosage: 130MG/M2 IV Q 3 WK
     Route: 042
     Dates: start: 20050124
  2. DOCETAXEL [Suspect]
     Indication: BILE DUCT CANCER
     Dosage: 40 MG/M2 IV WKLY 2 OF 3
     Route: 042
     Dates: start: 20050124, end: 20050207
  3. CELEBREX [Concomitant]
  4. DECADRON [Concomitant]

REACTIONS (5)
  - FAECAL OCCULT BLOOD POSITIVE [None]
  - FATIGUE [None]
  - GASTRIC NEOPLASM [None]
  - GASTROINTESTINAL HAEMORRHAGE [None]
  - MUCOSAL DISCOLOURATION [None]
